FAERS Safety Report 17614635 (Version 2)
Quarter: 2020Q2

REPORT INFORMATION
  Report Type: Spontaneous
  Country: HU (occurrence: HU)
  Receive Date: 20200402
  Receipt Date: 20200429
  Transmission Date: 20200713
  Serious: Yes (Other)
  Sender: FDA-Public Use
  Company Number: HU-ROCHE-2573420

PATIENT
  Age: 33 Year
  Sex: Female

DRUGS (1)
  1. HERCEPTIN [Suspect]
     Active Substance: TRASTUZUMAB
     Indication: BREAST CANCER METASTATIC
     Dosage: TOTAL OF 5 INJECTIONS RECEIVED
     Route: 058
     Dates: start: 20191106, end: 20200108

REACTIONS (5)
  - Musculoskeletal stiffness [Recovering/Resolving]
  - Decreased activity [Recovering/Resolving]
  - Muscle spasms [Not Recovered/Not Resolved]
  - Bone cancer [Unknown]
  - Metastases to bone [Unknown]

NARRATIVE: CASE EVENT DATE: 20191107
